FAERS Safety Report 9114462 (Version 2)
Quarter: 2013Q1

REPORT INFORMATION
  Report Type: Spontaneous
  Country: US (occurrence: US)
  Receive Date: 20130208
  Receipt Date: 20130321
  Transmission Date: 20140127
  Serious: No
  Sender: FDA-Public Use
  Company Number: US-ALLERGAN-1301650US

PATIENT
  Age: 32 Year
  Sex: Male
  Weight: 72.56 kg

DRUGS (3)
  1. BOTOX? [Suspect]
     Indication: HYPERHIDROSIS
     Dosage: UNK, SINGLE
     Route: 030
     Dates: start: 20040116, end: 20040116
  2. PREVACID [Concomitant]
     Indication: GASTROOESOPHAGEAL REFLUX DISEASE
     Dosage: 15 MG, QD
     Route: 048
  3. CLARITIN [Concomitant]
     Indication: ASTHMA
     Dosage: 10 MG, QHS
     Route: 048
     Dates: start: 2004

REACTIONS (5)
  - Depression [Unknown]
  - Skin odour abnormal [Not Recovered/Not Resolved]
  - Asthma [Unknown]
  - Gastrooesophageal reflux disease [Unknown]
  - Anhidrosis [Not Recovered/Not Resolved]
